FAERS Safety Report 19309017 (Version 1)
Quarter: 2021Q2

REPORT INFORMATION
  Report Type: Spontaneous
  Country: US (occurrence: US)
  Receive Date: 20210526
  Receipt Date: 20210526
  Transmission Date: 20210717
  Serious: Yes (Death)
  Sender: FDA-Public Use
  Company Number: None

PATIENT
  Age: 82 Year
  Sex: Male

DRUGS (1)
  1. REMDESIVIR (EUA) [Suspect]
     Active Substance: REMDESIVIR
     Route: 042
     Dates: start: 20200625, end: 20200804

REACTIONS (3)
  - Hepatic enzyme increased [None]
  - Acute respiratory failure [None]
  - Cardio-respiratory arrest [None]

NARRATIVE: CASE EVENT DATE: 20200804
